FAERS Safety Report 6837457-2 (Version None)
Quarter: 2010Q3

REPORT INFORMATION
  Report Type: 
  Country: None (occurrence: None)
  Receive Date: 20100713
  Receipt Date: 20100709
  Transmission Date: 20110219
  Serious: Yes (Hospitalization, Other)
  Sender: FDA-Public Use
  Company Number: US-MERCK-0805USA00688

PATIENT
  Age: 61 Year
  Sex: Female
  Weight: 74 kg

DRUGS (2)
  1. FOSAMAX [Suspect]
     Indication: BREAST CANCER
     Route: 048
     Dates: start: 20040101
  2. FOSAMAX [Suspect]
     Route: 048
     Dates: start: 20080801

REACTIONS (19)
  - ABSCESS [None]
  - ADVERSE EVENT [None]
  - ARTHRALGIA [None]
  - BONE DISORDER [None]
  - DENTAL CARIES [None]
  - DRUG HYPERSENSITIVITY [None]
  - FISTULA DISCHARGE [None]
  - FUNGAL INFECTION [None]
  - IMPAIRED HEALING [None]
  - ORAL CANDIDIASIS [None]
  - ORAL INFECTION [None]
  - OSTEONECROSIS [None]
  - OSTEONECROSIS OF JAW [None]
  - OVARIAN CYST [None]
  - OVARIAN DISORDER [None]
  - PAIN IN EXTREMITY [None]
  - PULPITIS DENTAL [None]
  - SKIN CANCER [None]
  - TOOTH DISORDER [None]
